FAERS Safety Report 6843810-3 (Version None)
Quarter: 2010Q3

REPORT INFORMATION
  Report Type: 
  Country: None (occurrence: None)
  Receive Date: 20100715
  Receipt Date: 20100701
  Transmission Date: 20110219
  Serious: Yes (Hospitalization, Other)
  Sender: FDA-Public Use
  Company Number: PHHY2010IT43132

PATIENT
  Sex: Female

DRUGS (5)
  1. ZOMETA [Suspect]
     Dosage: 4 MG MONTHLY (EVERY 28 DAYS )
     Route: 042
     Dates: start: 20100409, end: 20100513
  2. XELODA [Suspect]
     Indication: BREAST CANCER
     Dosage: 1000 MG DAILY
     Dates: start: 20100423, end: 20100527
  3. SEREUPIN [Concomitant]
     Indication: DEPRESSION
     Dosage: UNK
  4. CORDARONE [Concomitant]
     Indication: ATRIAL FIBRILLATION
  5. LOBIVON [Concomitant]
     Indication: HYPERTENSION

REACTIONS (20)
  - ARTHRALGIA [None]
  - ATAXIA [None]
  - AXONAL NEUROPATHY [None]
  - BALANCE DISORDER [None]
  - BLOOD CREATINE PHOSPHOKINASE INCREASED [None]
  - BLOOD CREATININE INCREASED [None]
  - BLOOD LACTATE DEHYDROGENASE INCREASED [None]
  - BLOOD POTASSIUM DECREASED [None]
  - BLOOD THYROID STIMULATING HORMONE DECREASED [None]
  - CEREBRAL DISORDER [None]
  - DYSARTHRIA [None]
  - ELECTROENCEPHALOGRAM ABNORMAL [None]
  - GAIT DISTURBANCE [None]
  - HYDROCEPHALUS [None]
  - HYPOAESTHESIA [None]
  - MYOGLOBIN BLOOD INCREASED [None]
  - OSTEOARTHRITIS [None]
  - PSYCHOMOTOR RETARDATION [None]
  - URINARY INCONTINENCE [None]
  - VISUAL PATHWAY DISORDER [None]
